FAERS Safety Report 20577790 (Version 1)
Quarter: 2022Q1

REPORT INFORMATION
  Report Type: Report from Study
  Country: AU (occurrence: AU)
  Receive Date: 20220310
  Receipt Date: 20220310
  Transmission Date: 20220423
  Serious: Yes (Hospitalization)
  Sender: FDA-Public Use
  Company Number: AU-MYLANLABS-2022M1018103

PATIENT
  Age: 55 Year
  Sex: Female
  Weight: 52 kg

DRUGS (2)
  1. ACETAMINOPHEN [Interacting]
     Active Substance: ACETAMINOPHEN
     Indication: Product used for unknown indication
     Dosage: UNK
     Route: 048
  2. POTASSIUM CHLORIDE [Interacting]
     Active Substance: POTASSIUM CHLORIDE
     Indication: Product used for unknown indication
     Dosage: 93000 MILLIGRAM, SUSTAINED-RELEASE TABLET
     Route: 048

REACTIONS (7)
  - Gastrointestinal disorder [Unknown]
  - Hyperkalaemia [Unknown]
  - Overdose [Unknown]
  - Electrocardiogram abnormal [Unknown]
  - Bezoar [Unknown]
  - Alcohol interaction [Unknown]
  - Drug interaction [Unknown]
